FAERS Safety Report 7727649-2 (Version None)
Quarter: 2011Q3

REPORT INFORMATION
  Report Type: 
  Country: None (occurrence: None)
  Receive Date: 20110902
  Receipt Date: 20110823
  Transmission Date: 20111222
  Serious: Yes (Hospitalization)
  Sender: FDA-Public Use
  Company Number: GB-BAYER-201033339GPV

PATIENT
  Age: 69 Year
  Sex: Female

DRUGS (7)
  1. AMLODIPINE [Concomitant]
     Indication: HYPERTENSION
     Dates: start: 20100301
  2. ATENOLOL [Concomitant]
     Indication: HYPERTENSION
     Dosage: 50 MG, BID
     Dates: start: 19850101
  3. ZOPICLONE [Concomitant]
     Indication: SEDATION
     Dates: start: 20100201
  4. ACETAMINOPHEN [Concomitant]
     Indication: PAIN
     Dates: start: 20100520
  5. SORAFENIB [Suspect]
     Indication: RENAL CELL CARCINOMA
     Dosage: 400 MG, BID
     Route: 048
     Dates: start: 20100506, end: 20100819
  6. IMODIUM [Concomitant]
     Indication: DIARRHOEA
     Dates: start: 20100624
  7. SIMVASTATIN [Concomitant]
     Indication: BLOOD CHOLESTEROL INCREASED
     Dates: start: 20080101

REACTIONS (2)
  - BLOOD POTASSIUM INCREASED [None]
  - VOMITING [None]
